FAERS Safety Report 5301804-3 (Version None)
Quarter: 2007Q2

REPORT INFORMATION
  Report Type: 
  Country: None (occurrence: None)
  Receive Date: 20070419
  Receipt Date: 20070413
  Transmission Date: 20071010
  Serious: Yes (Hospitalization)
  Sender: FDA-Public Use
  Company Number: FR-NOVOPROD-262100

PATIENT
  Age: 70 Year
  Sex: Female

DRUGS (11)
  1. NOVONORM [Suspect]
     Indication: DIABETES MELLITUS
     Dosage: 1 MG, TID
     Route: 048
     Dates: end: 20070203
  2. STAGID [Suspect]
     Indication: DIABETES MELLITUS
     Dates: end: 20070203
  3. STAGID [Suspect]
  4. FONZYLANE [Concomitant]
     Indication: DRUG USE FOR UNKNOWN INDICATION
     Dates: start: 20061102
  5. PLAVIX [Concomitant]
     Indication: DRUG USE FOR UNKNOWN INDICATION
     Dates: start: 20061102
  6. COZAAR [Concomitant]
     Indication: DRUG USE FOR UNKNOWN INDICATION
  7. TILCOTIL [Concomitant]
     Indication: DRUG USE FOR UNKNOWN INDICATION
  8. ALLOPURINOL [Concomitant]
     Indication: DRUG USE FOR UNKNOWN INDICATION
  9. DI-ANTALVIC                        /00016701/ [Concomitant]
     Indication: DRUG USE FOR UNKNOWN INDICATION
  10. PRAXILENE [Concomitant]
     Indication: DRUG USE FOR UNKNOWN INDICATION
  11. DURAGESIC-100 [Concomitant]
     Indication: DRUG USE FOR UNKNOWN INDICATION

REACTIONS (1)
  - CUTANEOUS VASCULITIS [None]
